FAERS Safety Report 24362786 (Version 1)
Quarter: 2024Q3

REPORT INFORMATION
  Report Type: Spontaneous
  Country: GB (occurrence: GB)
  Receive Date: 20240925
  Receipt Date: 20240925
  Transmission Date: 20241016
  Serious: Yes (Other)
  Sender: BAXTER
  Company Number: None

PATIENT
  Age: 55 Year
  Sex: Male
  Weight: 84 kg

DRUGS (1)
  1. ISOFLURANE [Suspect]
     Active Substance: ISOFLURANE
     Indication: Adverse drug reaction
     Dosage: (DOSAGE TEXT: 7-12MG/HOUR 100% ISOFLURANE AS INHALATIONAL SEDATION ON ICU)
     Route: 065
     Dates: start: 20240903, end: 20240906

REACTIONS (1)
  - Electrocardiogram QT prolonged [Recovered/Resolved]

NARRATIVE: CASE EVENT DATE: 20240904
